FAERS Safety Report 7703210-0 (Version None)
Quarter: 2011Q3

REPORT INFORMATION
  Report Type: 
  Country: None (occurrence: None)
  Receive Date: 20110823
  Receipt Date: 20110812
  Transmission Date: 20111222
  Serious: Yes (Other)
  Sender: FDA-Public Use
  Company Number: CA-JNJFOC-20110701640

PATIENT
  Sex: Male
  Weight: 82.1 kg

DRUGS (6)
  1. PAXIL [Concomitant]
     Route: 048
  2. SORIATANE [Concomitant]
     Route: 048
  3. IMOVANE [Concomitant]
  4. REMICADE [Suspect]
     Route: 042
     Dates: start: 20110624
  5. REMICADE [Suspect]
     Indication: PSORIASIS
     Route: 042
     Dates: start: 20101206
  6. ATARAX [Concomitant]
     Route: 048

REACTIONS (1)
  - HYPOAESTHESIA [None]
